FAERS Safety Report 9624569 (Version 2)
Quarter: 2013Q4

REPORT INFORMATION
  Report Type: Spontaneous
  Country: IN (occurrence: IN)
  Receive Date: 20131015
  Receipt Date: 20131017
  Transmission Date: 20140711
  Serious: Yes (Hospitalization, Other)
  Sender: FDA-Public Use
  Company Number: PHHY2013IN112484

PATIENT
  Age: 12 Year
  Sex: Male

DRUGS (1)
  1. VALPROIC ACID [Suspect]
     Indication: CONVULSION
     Dosage: 400 MG, PER DAY

REACTIONS (18)
  - Cerebral infarction [Recovering/Resolving]
  - MELAS syndrome [Recovered/Resolved]
  - Headache [Recovered/Resolved]
  - Convulsion [Recovered/Resolved]
  - Condition aggravated [Unknown]
  - Blood lactate dehydrogenase increased [Recovering/Resolving]
  - Blood creatine phosphokinase increased [Recovering/Resolving]
  - Myositis [Recovering/Resolving]
  - Hepatotoxicity [Recovering/Resolving]
  - Liver injury [Recovered/Resolved]
  - Discomfort [Recovering/Resolving]
  - Myalgia [Recovering/Resolving]
  - Pain in extremity [Recovered/Resolved]
  - Muscular weakness [Recovered/Resolved]
  - Blood lactic acid increased [Recovering/Resolving]
  - Lethargy [Recovering/Resolving]
  - Irritability [Recovering/Resolving]
  - Vomiting [Recovering/Resolving]
